FAERS Safety Report 16019676 (Version 3)
Quarter: 2020Q3

REPORT INFORMATION
  Report Type: Spontaneous
  Country: US (occurrence: US)
  Receive Date: 20190228
  Receipt Date: 20200702
  Transmission Date: 20201102
  Serious: Yes (Hospitalization)
  Sender: FDA-Public Use
  Company Number: US-VIFOR (INTERNATIONAL) INC.-VIT-2019-01729

PATIENT
  Age: 83 Year
  Sex: Female

DRUGS (15)
  1. FUROSEMIDE. [Concomitant]
     Active Substance: FUROSEMIDE
  2. LEVOTHYROXINE SODIUM. [Concomitant]
     Active Substance: LEVOTHYROXINE SODIUM
  3. PANTOPRAZOLE SODIUM. [Concomitant]
     Active Substance: PANTOPRAZOLE SODIUM
  4. LANTUS SOLOSTAR [Concomitant]
     Active Substance: INSULIN GLARGINE
  5. VELTASSA [Suspect]
     Active Substance: PATIROMER
     Indication: HYPERKALAEMIA
     Route: 048
     Dates: start: 20190208
  6. AMLODIPINE BESYLATE. [Concomitant]
     Active Substance: AMLODIPINE BESYLATE
  7. STOOL SOFTENER (DOCUSATE) [Concomitant]
     Active Substance: DOCUSATE
  8. ATORVASTATIN CALCIUM. [Concomitant]
     Active Substance: ATORVASTATIN CALCIUM
  9. METHOTREXATE. [Concomitant]
     Active Substance: METHOTREXATE
  10. MELOXICAM. [Concomitant]
     Active Substance: MELOXICAM
  11. METFORMIN HYDROCHLORIDE. [Concomitant]
     Active Substance: METFORMIN HYDROCHLORIDE
  12. SULFASALAZINE. [Concomitant]
     Active Substance: SULFASALAZINE
  13. TOBRAMYCIN. [Concomitant]
     Active Substance: TOBRAMYCIN
  14. FERROUS SULFATE. [Concomitant]
     Active Substance: FERROUS SULFATE
  15. FOLIC ACID. [Concomitant]
     Active Substance: FOLIC ACID

REACTIONS (6)
  - Catheterisation cardiac [Unknown]
  - Dyspnoea exertional [Recovered/Resolved]
  - Acute kidney injury [Unknown]
  - Constipation [Recovered/Resolved]
  - Fatigue [Recovered/Resolved]
  - Blood pressure abnormal [Recovered/Resolved]

NARRATIVE: CASE EVENT DATE: 201902
